FAERS Safety Report 9341376 (Version 3)
Quarter: 2015Q2

REPORT INFORMATION
  Report Type: Spontaneous
  Country: US (occurrence: US)
  Receive Date: 20130611
  Receipt Date: 20150524
  Transmission Date: 20150821
  Serious: Yes (Other)
  Sender: FDA-Public Use
  Company Number: US-JNJFOC-20130601062

PATIENT
  Sex: Male
  Weight: 74.84 kg

DRUGS (6)
  1. DURAGESIC [Suspect]
     Active Substance: FENTANYL
     Indication: PAIN
     Route: 062
     Dates: start: 20130221, end: 2013
  2. DURAGESIC [Suspect]
     Active Substance: FENTANYL
     Indication: PAIN
     Route: 062
     Dates: end: 2013
  3. PROTONIX [Concomitant]
     Active Substance: PANTOPRAZOLE SODIUM
     Indication: GASTROOESOPHAGEAL REFLUX DISEASE
     Route: 048
  4. DURAGESIC [Suspect]
     Active Substance: FENTANYL
     Indication: PAIN
     Route: 062
     Dates: end: 2013
  5. LORAZEPAM. [Concomitant]
     Active Substance: LORAZEPAM
     Indication: ANXIETY
     Dosage: AS NEEDED
     Route: 048
  6. DURAGESIC [Suspect]
     Active Substance: FENTANYL
     Indication: PAIN
     Route: 062
     Dates: end: 20130221

REACTIONS (13)
  - Product quality issue [Unknown]
  - Treatment noncompliance [Unknown]
  - Insomnia [Not Recovered/Not Resolved]
  - Tremor [Unknown]
  - Dyskinesia [Unknown]
  - Balance disorder [Not Recovered/Not Resolved]
  - Contusion [Unknown]
  - Disorientation [Not Recovered/Not Resolved]
  - Fall [Unknown]
  - Skin lesion [Unknown]
  - Confusional state [Unknown]
  - Drug dose omission [Unknown]
  - Somnambulism [Not Recovered/Not Resolved]

NARRATIVE: CASE EVENT DATE: 2013
